FAERS Safety Report 6334808-2 (Version None)
Quarter: 2009Q3

REPORT INFORMATION
  Report Type: 
  Country: None (occurrence: None)
  Receive Date: 20090826
  Receipt Date: 20090811
  Transmission Date: 20100115
  Serious: Yes (Hospitalization, Other)
  Sender: FDA-Public Use
  Company Number: AUR-APL-2009-00395

PATIENT
  Age: 85 Year
  Sex: Female

DRUGS (2)
  1. SIMVASTATIN [Suspect]
     Dosage: 20MG, DAILY, UNK
  2. CPH-82 (REUMACON) [Suspect]

REACTIONS (5)
  - CARDIAC FAILURE [None]
  - DEHYDRATION [None]
  - DRUG INTERACTION [None]
  - RHABDOMYOLYSIS [None]
  - WEIGHT DECREASED [None]
